FAERS Safety Report 21285745 (Version 1)
Quarter: 2022Q3

REPORT INFORMATION
  Report Type: Spontaneous
  Country: CA (occurrence: CA)
  Receive Date: 20220902
  Receipt Date: 20220902
  Transmission Date: 20221027
  Serious: Yes (Other)
  Sender: FDA-Public Use
  Company Number: CA-IGSA-BIG0020209

PATIENT
  Age: 11 Year
  Sex: Female

DRUGS (5)
  1. HUMAN IMMUNOGLOBULIN G [Suspect]
     Active Substance: HUMAN IMMUNOGLOBULIN G
     Indication: Multisystem inflammatory syndrome in children
     Dosage: 2 GRAM PER KILOGRAM, SINGLE
  2. HUMAN IMMUNOGLOBULIN G [Suspect]
     Active Substance: HUMAN IMMUNOGLOBULIN G
     Indication: Off label use
  3. METHYLPREDNISOLONE [Concomitant]
     Active Substance: METHYLPREDNISOLONE
     Indication: Mucocutaneous ulceration
     Dosage: 30 MILLIGRAM/KILOGRAM
     Route: 042
  4. ETANERCEPT [Concomitant]
     Active Substance: ETANERCEPT
     Indication: Mucocutaneous ulceration
     Dosage: 0.6 MILLIGRAM/KILOGRAM
     Route: 058
  5. ETANERCEPT [Concomitant]
     Active Substance: ETANERCEPT
     Dosage: 0.8 MILLIGRAM
     Route: 058

REACTIONS (3)
  - Mucocutaneous ulceration [Recovered/Resolved with Sequelae]
  - Condition aggravated [Recovered/Resolved with Sequelae]
  - Drug interaction [Recovered/Resolved with Sequelae]
